FAERS Safety Report 17844576 (Version 1)
Quarter: 2020Q2

REPORT INFORMATION
  Report Type: Report from Study
  Country: FR (occurrence: FR)
  Receive Date: 20200601
  Receipt Date: 20200601
  Transmission Date: 20200714
  Serious: Yes (Hospitalization)
  Sender: FDA-Public Use
  Company Number: FR-DECIPHERA PHARMACEUTICALS, LLC-2085309

PATIENT
  Age: 84 Year
  Sex: Female
  Weight: 66.6 kg

DRUGS (20)
  1. DCC-2618 (DCC-2618) [Suspect]
     Active Substance: RIPRETINIB
     Route: 048
     Dates: start: 20200107, end: 20200212
  2. MIANSERINE (MIANSERIN HYDROCHLORIDE) [Concomitant]
  3. DAFALGAN (PARACETAMOL) [Concomitant]
     Dates: start: 20191105
  4. ALLOPURINOL. [Concomitant]
     Active Substance: ALLOPURINOL
  5. DCC-2618 (DCC-2618) [Suspect]
     Active Substance: RIPRETINIB
     Route: 048
     Dates: start: 20191114, end: 20200106
  6. SYMBICORT [Concomitant]
     Active Substance: BUDESONIDE\FORMOTEROL FUMARATE DIHYDRATE
  7. IMOVANE [Concomitant]
     Active Substance: ZOPICLONE
     Dates: start: 20191029
  8. DCC-2618 (DCC-2618) [Suspect]
     Active Substance: RIPRETINIB
     Route: 048
     Dates: start: 20191024, end: 20191113
  9. ZOPHREN (ONDANSETRON HYDROCHLORIDE) [Concomitant]
     Active Substance: ONDANSETRON HYDROCHLORIDE
     Dates: start: 20191023
  10. SPASFON (PHLOROGLUCINOL, TRIMETHYLPHLOROGLUCINOL) [Concomitant]
     Active Substance: PHLOROGLUCINOL\1,3,5-TRIMETHOXYBENZENE
     Dates: start: 20191023
  11. DCC-2618 (DCC-2618) [Suspect]
     Active Substance: RIPRETINIB
     Route: 048
     Dates: end: 20200506
  12. SALBUTAMOL (SALBUTAMOL SULFATE) [Concomitant]
     Dates: start: 20191023
  13. AMLODIPINE [Concomitant]
     Active Substance: AMLODIPINE BESYLATE
     Dates: start: 20191030
  14. MAGNESIUM SULFATE. [Concomitant]
     Active Substance: MAGNESIUM SULFATE
  15. SMECTA [Concomitant]
     Active Substance: MONTMORILLONITE
     Dates: start: 20191023
  16. LOPERAMIDE (LOPERAMIDE HYDROCHLORIDE) [Concomitant]
  17. APROVEL (IRBESARTAN) [Concomitant]
     Active Substance: IRBESARTAN
     Dates: start: 20180906
  18. LOXEN (NICARDIPINE HYDROCHLORIDE) [Concomitant]
     Active Substance: NICARDIPINE HYDROCHLORIDE
     Dates: start: 20190131
  19. QINLOCK [Suspect]
     Active Substance: RIPRETINIB
     Indication: GASTROINTESTINAL STROMAL TUMOUR
     Route: 048
     Dates: start: 20191009, end: 20191012
  20. RACECADOTRIL (RACECADOTRIL) [Concomitant]

REACTIONS (1)
  - Renal failure [Not Recovered/Not Resolved]

NARRATIVE: CASE EVENT DATE: 20200516
